FAERS Safety Report 21239555 (Version 1)
Quarter: 2022Q3

REPORT INFORMATION
  Report Type: Report from Study
  Country: BE (occurrence: BE)
  Receive Date: 20220822
  Receipt Date: 20220822
  Transmission Date: 20221027
  Serious: Yes (Death, Hospitalization, Other)
  Sender: FDA-Public Use
  Company Number: BE-NOVARTISPH-NVSC2022BE186094

PATIENT
  Sex: Male

DRUGS (1)
  1. ELTROMBOPAG [Suspect]
     Active Substance: ELTROMBOPAG
     Indication: Immune thrombocytopenia
     Dosage: 50 MG, (FOR 3 MONTHS)
     Route: 065

REACTIONS (6)
  - Death [Fatal]
  - Haemorrhage [Unknown]
  - Haematuria [Unknown]
  - Petechiae [Unknown]
  - Platelet count decreased [Unknown]
  - Intestinal haemorrhage [Unknown]
